FAERS Safety Report 25992021 (Version 1)
Quarter: 2025Q4

REPORT INFORMATION
  Report Type: Spontaneous
  Country: US (occurrence: None)
  Receive Date: 20251103
  Receipt Date: 20251103
  Transmission Date: 20260118
  Serious: Yes (Other)
  Sender: FDA-CTU
  Company Number: None

PATIENT
  Age: 65 Year
  Sex: Male

DRUGS (1)
  1. FINASTERIDE\MINOXIDIL [Suspect]
     Active Substance: FINASTERIDE\MINOXIDIL
     Indication: Alopecia
     Dosage: DAILY TOPICAL
     Route: 061

REACTIONS (4)
  - Skin disorder [None]
  - Scab [None]
  - Rash [None]
  - Application site rash [None]

NARRATIVE: CASE EVENT DATE: 20251102
